FAERS Safety Report 16297330 (Version 1)
Quarter: 2019Q2

REPORT INFORMATION
  Report Type: Spontaneous
  Country: US (occurrence: US)
  Receive Date: 20190510
  Receipt Date: 20190510
  Transmission Date: 20190711
  Serious: Yes (Hospitalization, Other)
  Sender: FDA-Public Use
  Company Number: US-TEVA-2019-US-1048609

PATIENT
  Age: 51 Year
  Sex: Male

DRUGS (7)
  1. COPAXONE [Suspect]
     Active Substance: GLATIRAMER ACETATE
     Indication: MULTIPLE SCLEROSIS
     Dosage: 20 MILLIGRAM/MILLILITERS DAILY;
     Route: 058
  2. AMLODIPINE [Concomitant]
     Active Substance: AMLODIPINE BESYLATE
  3. PANTOPRAZOLE [Concomitant]
     Active Substance: PANTOPRAZOLE
  4. VALIUM [Concomitant]
     Active Substance: DIAZEPAM
  5. OXYCODONE [Concomitant]
     Active Substance: OXYCODONE
  6. FLEXERIL [Concomitant]
     Active Substance: CYCLOBENZAPRINE HYDROCHLORIDE
  7. LISINOPRIL. [Concomitant]
     Active Substance: LISINOPRIL

REACTIONS (15)
  - Malabsorption [Recovering/Resolving]
  - Injection site mass [Recovered/Resolved]
  - Injection site pruritus [Unknown]
  - Balance disorder [Unknown]
  - Injection site pain [Unknown]
  - Multiple sclerosis [Unknown]
  - Scar [Unknown]
  - Injection site erythema [Unknown]
  - Respiratory arrest [Recovered/Resolved]
  - Seizure [Unknown]
  - Lethargy [Unknown]
  - Weight decreased [Unknown]
  - Device issue [Unknown]
  - Flushing [Unknown]
  - Muscle spasticity [Unknown]

NARRATIVE: CASE EVENT DATE: 2018
